FAERS Safety Report 4896539-5 (Version None)
Quarter: 2006Q1

REPORT INFORMATION
  Report Type: 
  Country: None (occurrence: None)
  Receive Date: 20060131
  Receipt Date: 20060126
  Transmission Date: 20060701
  Serious: Yes (Hospitalization)
  Sender: FDA-Public Use
  Company Number: IE-GLAXOSMITHKLINE-B0408424A

PATIENT
  Age: 70 Year
  Sex: Female

DRUGS (5)
  1. AUGMENTIN '125' [Suspect]
     Route: 042
  2. AULIN (NIMESULIDE) [Suspect]
     Dosage: 100MG TWICE PER DAY
     Route: 048
     Dates: start: 20050902
  3. CLAVAMEL [Suspect]
     Dosage: 1.2G PER DAY
     Route: 042
  4. ASPIRIN [Concomitant]
     Dosage: 75MG UNKNOWN
     Route: 065
  5. COD LIVER OIL [Concomitant]
     Route: 065

REACTIONS (6)
  - FAECES DISCOLOURED [None]
  - HEPATIC FUNCTION ABNORMAL [None]
  - HEPATITIS [None]
  - PRURITUS [None]
  - URINE ABNORMALITY [None]
  - WEIGHT DECREASED [None]
